FAERS Safety Report 5454913-2 (Version None)
Quarter: 2007Q3

REPORT INFORMATION
  Report Type: 
  Country: None (occurrence: None)
  Receive Date: 20070917
  Receipt Date: 20061024
  Transmission Date: 20080115
  Serious: No
  Sender: FDA-Public Use
  Company Number: US-ASTRAZENECA-2006UW20573

PATIENT
  Age: 49 Year
  Sex: Female
  Weight: 124.7 kg

DRUGS (6)
  1. SEROQUEL [Suspect]
     Indication: BIPOLAR DISORDER
     Route: 048
     Dates: start: 20041001
  2. LITHIUM [Concomitant]
  3. LAMICTAL [Concomitant]
  4. AMBIEN CR [Concomitant]
  5. KLONOPIN [Concomitant]
  6. ZOLOFT [Concomitant]

REACTIONS (1)
  - HANGOVER [None]
